FAERS Safety Report 10335164 (Version 1)
Quarter: 2014Q3

REPORT INFORMATION
  Report Type: Spontaneous
  Country: US (occurrence: US)
  Receive Date: 20140723
  Receipt Date: 20140723
  Transmission Date: 20150326
  Serious: No
  Sender: FDA-Public Use
  Company Number: US-PFIZER INC-2014201651

PATIENT
  Sex: Female

DRUGS (1)
  1. ADVIL [Suspect]
     Active Substance: IBUPROFEN
     Indication: HEADACHE
     Dosage: THREE TABLETS (TOOK THREE TABLETS AT ONE TIME), UNK

REACTIONS (3)
  - Drug ineffective [Unknown]
  - Visual acuity reduced [Unknown]
  - Extra dose administered [Unknown]
